FAERS Safety Report 7642557-3 (Version None)
Quarter: 2011Q3

REPORT INFORMATION
  Report Type: 
  Country: None (occurrence: None)
  Receive Date: 20110728
  Receipt Date: 20110725
  Transmission Date: 20111222
  Serious: Yes (Death, Other)
  Sender: FDA-Public Use
  Company Number: US-B.I. PHARMACEUTICALS,INC./RIDGEFIELD-2011-BP-16441BP

PATIENT
  Age: 75 Year
  Sex: Female
  Weight: 66.4 kg

DRUGS (9)
  1. METFORMIN HCL [Concomitant]
  2. PRADAXA [Suspect]
     Indication: ATRIAL FIBRILLATION
     Dosage: 300 MG
  3. POTASSIUM [Concomitant]
  4. DILTIAZEM [Concomitant]
  5. LASIX [Concomitant]
  6. GLIPIZIDE [Concomitant]
  7. GEMFIBROZIL [Concomitant]
  8. ZOCOR [Concomitant]
  9. SPIRONOLACTONE [Concomitant]

REACTIONS (14)
  - RENAL FAILURE [None]
  - OROPHARYNGEAL PAIN [None]
  - DYSPNOEA [None]
  - HAEMORRHAGE INTRACRANIAL [None]
  - PULMONARY HAEMORRHAGE [None]
  - ASTHENIA [None]
  - HAEMORRHAGE [None]
  - HAEMATEMESIS [None]
  - PETECHIAE [None]
  - ECCHYMOSIS [None]
  - HEADACHE [None]
  - THROMBOSIS [None]
  - GASTROINTESTINAL HAEMORRHAGE [None]
  - MELAENA [None]
